FAERS Safety Report 19652250 (Version 7)
Quarter: 2022Q4

REPORT INFORMATION
  Report Type: Spontaneous
  Country: CA (occurrence: CA)
  Receive Date: 20210803
  Receipt Date: 20221024
  Transmission Date: 20230113
  Serious: Yes (Other)
  Sender: FDA-Public Use
  Company Number: CA-PFIZER INC-2021908474

PATIENT
  Age: 59 Year
  Sex: Female
  Weight: 80 kg

DRUGS (4)
  1. RUXIENCE [Suspect]
     Active Substance: RITUXIMAB-PVVR
     Indication: Rheumatoid arthritis
     Dosage: 500 MG, SINGLE (500MG INTRAVENOUS X 1 DOSE FOR RETREATMENT 120 MINUTE INFUSION)
     Route: 042
     Dates: start: 20210910, end: 20210910
  2. RUXIENCE [Suspect]
     Active Substance: RITUXIMAB-PVVR
     Dosage: 1000MG, 1 DOSE
     Route: 042
     Dates: start: 20220309, end: 20220309
  3. RUXIENCE [Suspect]
     Active Substance: RITUXIMAB-PVVR
     Dosage: 1000MG, 1 DOSE
     Route: 042
     Dates: start: 20220915, end: 20220915
  4. PREDNISONE [Concomitant]
     Active Substance: PREDNISONE
     Dosage: 1 DF

REACTIONS (11)
  - Rheumatoid arthritis [Unknown]
  - Ankle fracture [Unknown]
  - Upper limb fracture [Unknown]
  - Fall [Unknown]
  - Drug ineffective [Unknown]
  - C-reactive protein increased [Unknown]
  - COVID-19 [Unknown]
  - Off label use [Unknown]
  - Off label use [Unknown]
  - Intentional product use issue [Unknown]
  - Off label use [Unknown]

NARRATIVE: CASE EVENT DATE: 20210910
